FAERS Safety Report 6099919-8 (Version None)
Quarter: 2009Q1

REPORT INFORMATION
  Report Type: 
  Country: None (occurrence: None)
  Receive Date: 20090302
  Receipt Date: 20090302
  Transmission Date: 20090719
  Serious: Yes (Life-Threatening, Hospitalization, Other)
  Sender: FDA-Public Use
  Company Number: None

PATIENT
  Age: 5 Year
  Sex: Male
  Weight: 18.1439 kg

DRUGS (1)
  1. ACETAZOLAMIDE [Suspect]
     Indication: SPINOCEREBELLAR ATAXIA
     Dosage: 1500 MG DAILY PO
     Route: 048

REACTIONS (9)
  - ACIDOSIS [None]
  - APPARENT DEATH [None]
  - COUGH [None]
  - DIZZINESS [None]
  - DRUG PRESCRIBING ERROR [None]
  - DYSPNOEA [None]
  - INCORRECT DOSE ADMINISTERED [None]
  - LOSS OF CONSCIOUSNESS [None]
  - MEDICATION ERROR [None]
